FAERS Safety Report 4343422-X (Version None)
Quarter: 2004Q2

REPORT INFORMATION
  Report Type: 
  Country: None (occurrence: None)
  Receive Date: 20040419
  Receipt Date: 20040406
  Transmission Date: 20050107
  Serious: No
  Sender: FDA-Public Use
  Company Number: 2004UW06484

PATIENT
  Age: 61 Year
  Sex: Male
  Weight: 88.905 kg

DRUGS (7)
  1. CRESTOR [Suspect]
     Indication: HYPERCHOLESTEROLAEMIA
     Dosage: 10 MG QD PO
     Route: 048
     Dates: start: 20040301, end: 20040101
  2. DOXAZOSIN MESYLATE [Concomitant]
  3. TRIAM ^LICHTENSTEIN^ [Concomitant]
  4. ACCUPRIL [Concomitant]
  5. ATENOLOL [Concomitant]
  6. MULTIVITAMIN [Concomitant]
  7. GLUCOSAMINE [Concomitant]

REACTIONS (5)
  - CHROMATURIA [None]
  - CONSTIPATION [None]
  - HEPATIC ENZYME INCREASED [None]
  - JAUNDICE [None]
  - PRURITUS GENERALISED [None]
